FAERS Safety Report 8126313-8 (Version None)
Quarter: 2012Q1

REPORT INFORMATION
  Report Type: 
  Country: None (occurrence: None)
  Receive Date: 20120209
  Receipt Date: 20120131
  Transmission Date: 20120608
  Serious: Yes (Death)
  Sender: FDA-Public Use
  Company Number: US-ABBOTT-12P-163-0893091-02

PATIENT
  Sex: Male
  Weight: 79.45 kg

DRUGS (6)
  1. HUMIRA [Suspect]
     Indication: PSORIASIS
     Route: 058
     Dates: start: 20110414, end: 20110429
  2. HYDROCHLOROTHIAZIDE [Concomitant]
     Indication: HYPERTENSION
     Dates: start: 20070801
  3. CLOBEX [Concomitant]
     Indication: PSORIASIS
     Route: 061
     Dates: start: 20110408
  4. METOCLOPRAMIDE [Concomitant]
     Indication: HYPERTENSION
     Dates: start: 20100201
  5. VECTICAL [Concomitant]
     Indication: PSORIASIS
     Route: 061
     Dates: start: 20101012
  6. CRESTOR [Concomitant]
     Indication: BLOOD CHOLESTEROL INCREASED
     Dates: start: 20071001

REACTIONS (1)
  - SEPSIS [None]
